FAERS Safety Report 5829118-3 (Version None)
Quarter: 2008Q2

REPORT INFORMATION
  Report Type: 
  Country: None (occurrence: None)
  Receive Date: 20080601
  Receipt Date: 20080205
  Transmission Date: 20081010
  Serious: No
  Sender: FDA-Public Use
  Company Number: US200802001201

PATIENT
  Age: 81 Year
  Sex: Male

DRUGS (5)
  1. BYETTA [Suspect]
     Indication: TYPE 2 DIABETES MELLITUS
     Dosage: 10 UG, 2/D, SUBCUTANEOUS
     Route: 058
     Dates: start: 20080101
  2. EXENATIDE UNK STRENGTH PEN, DISPOSABLE DEVICE (EXENATIDE PEN [Concomitant]
  3. EXENATIDE 10MCG PEN, DISPOSABLE DEVICE [Concomitant]
  4. AMARYL [Concomitant]
  5. GLIPIZIDE [Concomitant]

REACTIONS (4)
  - DECREASED APPETITE [None]
  - FATIGUE [None]
  - NAUSEA [None]
  - WEIGHT DECREASED [None]
